FAERS Safety Report 9641788 (Version 2)
Quarter: 2013Q4

REPORT INFORMATION
  Report Type: Spontaneous
  Country: BR (occurrence: BR)
  Receive Date: 20131023
  Receipt Date: 20131023
  Transmission Date: 20140711
  Serious: Yes (Other)
  Sender: FDA-Public Use
  Company Number: BR-ABBVIE-13P-020-1153574-00

PATIENT
  Age: 49 Year
  Sex: Female

DRUGS (2)
  1. HUMIRA [Suspect]
     Indication: RHEUMATOID ARTHRITIS
     Route: 058
     Dates: end: 201305
  2. HUMIRA [Suspect]
     Dosage: 2 INJECTIONS

REACTIONS (5)
  - Uterine leiomyoma [Recovered/Resolved]
  - Unevaluable event [Unknown]
  - Weight decreased [Unknown]
  - Vomiting [Unknown]
  - Headache [Unknown]
